FAERS Safety Report 12924170 (Version 1)
Quarter: 2016Q4

REPORT INFORMATION
  Report Type: Spontaneous
  Country: CN (occurrence: CN)
  Receive Date: 20161109
  Receipt Date: 20161109
  Transmission Date: 20170207
  Serious: Yes (Life-Threatening)
  Sender: FDA-Public Use
  Company Number: CN-BAYER-2016-213503

PATIENT
  Age: 76 Year
  Sex: Male
  Weight: 60 kg

DRUGS (2)
  1. IOPROMIDE [Suspect]
     Active Substance: IOPROMIDE
     Indication: RENAL SCAN
  2. IOPROMIDE [Suspect]
     Active Substance: IOPROMIDE
     Indication: IMAGING PROCEDURE
     Dosage: 50 ML, ONCE
     Route: 042
     Dates: start: 20160803, end: 20160803

REACTIONS (4)
  - Mental disorder [Recovering/Resolving]
  - Dyspnoea [Recovering/Resolving]
  - Lip oedema [Recovering/Resolving]
  - Tongue oedema [Recovering/Resolving]

NARRATIVE: CASE EVENT DATE: 20160803
